FAERS Safety Report 8606432-X (Version None)
Quarter: 2012Q3

REPORT INFORMATION
  Report Type: 
  Country: None (occurrence: None)
  Receive Date: 20120820
  Receipt Date: 20120330
  Transmission Date: 20120928
  Serious: No
  Sender: FDA-Public Use
  Company Number: PR-ASTRAZENECA-2012SE21482

PATIENT
  Sex: Female

DRUGS (1)
  1. SYMBICORT [Suspect]
     Indication: ASTHMA
     Dosage: 160/4.5 AND FREQUENCY UNKNOWN
     Route: 055

REACTIONS (1)
  - LIP SWELLING [None]
